FAERS Safety Report 9357604 (Version 3)
Quarter: 2014Q2

REPORT INFORMATION
  Report Type: Spontaneous
  Country: US (occurrence: US)
  Receive Date: 20130620
  Receipt Date: 20140527
  Transmission Date: 20141212
  Serious: Yes (Hospitalization)
  Sender: FDA-Public Use
  Company Number: US-BAYER-2013-073756

PATIENT
  Age: 37 Year
  Sex: Female
  Weight: 72.56 kg

DRUGS (18)
  1. YAZ [Suspect]
     Indication: CONTRACEPTION
     Dosage: UNK
     Dates: start: 2008, end: 2011
  2. YASMIN [Suspect]
     Indication: CONTRACEPTION
  3. PROVIGIL [Concomitant]
     Dosage: 100 MG, QD
     Route: 048
     Dates: start: 20110913
  4. CARMOL [UREA] [Concomitant]
     Dosage: UNK
     Route: 061
     Dates: start: 20110913
  5. ATIVAN [Concomitant]
     Dosage: 1MG TWICE DAILY
     Route: 048
     Dates: start: 20110913
  6. BACLOFEN [Concomitant]
     Dosage: 10 MG, TID
     Route: 048
     Dates: start: 20110913
  7. TOPAMAX [Concomitant]
     Dosage: UNK
     Route: 048
     Dates: start: 20110913
  8. LEXAPRO [Concomitant]
     Dosage: 10 MG, UNK
     Route: 048
     Dates: start: 20110913
  9. SYNTHROID [Concomitant]
     Dosage: 200 ?G, UNK
     Route: 048
     Dates: start: 20110913
  10. COPAXONE [Concomitant]
     Dosage: UNK
     Route: 058
     Dates: start: 20110913
  11. GABAPENTIN [Concomitant]
     Dosage: UNK
     Dates: start: 20110913
  12. AMITRIPTYLINE [Concomitant]
     Dosage: UNK
     Route: 048
     Dates: start: 20110913
  13. ZANAFLEX [Concomitant]
     Dosage: 8 MG, UNK
     Route: 048
     Dates: start: 20110913
  14. AMBIEN [Concomitant]
     Dosage: UNK
     Dates: start: 20110913
  15. IMITREX [Concomitant]
     Dosage: UNK
     Dates: start: 20110913
  16. LIDODERM [Concomitant]
     Dosage: UNK
     Route: 062
     Dates: start: 20110913
  17. MAGNESIUM [Concomitant]
     Dosage: 500 MG, QD
     Route: 048
     Dates: start: 20110913
  18. VITAMIN D [COLECALCIFEROL] [Concomitant]
     Dosage: 5000 UNITS Q WEEK
     Route: 048

REACTIONS (4)
  - Cerebrovascular accident [None]
  - Injury [None]
  - Pain [None]
  - Pain [None]
